FAERS Safety Report 12179140 (Version 2)
Quarter: 2016Q1

REPORT INFORMATION
  Report Type: Spontaneous
  Country: US (occurrence: US)
  Receive Date: 20160314
  Receipt Date: 20160318
  Transmission Date: 20160526
  Serious: Yes (Hospitalization, Other)
  Sender: FDA-Public Use
  Company Number: US-UNITED THERAPEUTICS-UNT-2016-001377

PATIENT
  Age: 14 Year
  Sex: Female
  Weight: 61.22 kg

DRUGS (3)
  1. REMODULIN [Suspect]
     Active Substance: TREPROSTINIL
     Indication: PULMONARY ARTERIAL HYPERTENSION
     Dosage: 0.097 ?G/KG, CONTINUING
     Route: 058
     Dates: start: 20140111
  2. WARFARIN [Concomitant]
     Active Substance: WARFARIN
     Indication: PRODUCT USED FOR UNKNOWN INDICATION
  3. REMODULIN [Suspect]
     Active Substance: TREPROSTINIL
     Dosage: 0.102 ?G/KG, CONTINUING
     Route: 058
     Dates: start: 20160111

REACTIONS (6)
  - Infusion site inflammation [Unknown]
  - Infusion site irritation [Not Recovered/Not Resolved]
  - Physical assault [Unknown]
  - Infusion site discomfort [Unknown]
  - Infusion site pain [Unknown]
  - Emotional distress [Unknown]

NARRATIVE: CASE EVENT DATE: 201601
